FAERS Safety Report 7112366-2 (Version None)
Quarter: 2010Q4

REPORT INFORMATION
  Report Type: 
  Country: None (occurrence: None)
  Receive Date: 20101119
  Receipt Date: 20100920
  Transmission Date: 20110411
  Serious: No
  Sender: FDA-Public Use
  Company Number: A0882078A

PATIENT
  Age: 81 Year
  Sex: Male

DRUGS (5)
  1. AVODART [Suspect]
     Dosage: .5MG PER DAY
     Route: 048
     Dates: start: 20100401, end: 20100801
  2. PLAVIX [Concomitant]
  3. LISINOPRIL [Concomitant]
  4. XALATAN [Concomitant]
  5. DALMANE [Concomitant]

REACTIONS (4)
  - BREAST PAIN [None]
  - BREAST SWELLING [None]
  - CONSTIPATION [None]
  - NIPPLE PAIN [None]
